FAERS Safety Report 23242067 (Version 3)
Quarter: 2023Q4

REPORT INFORMATION
  Report Type: Report from Study
  Country: CA (occurrence: CA)
  Receive Date: 20231129
  Receipt Date: 20231231
  Transmission Date: 20240110
  Serious: Yes (Hospitalization, Other)
  Sender: FDA-Public Use
  Company Number: CA-JNJFOC-20230210030

PATIENT
  Age: 51 Year
  Sex: Female
  Weight: 84 kg

DRUGS (6)
  1. REMICADE [Suspect]
     Active Substance: INFLIXIMAB
     Indication: Crohn^s disease
     Dosage: EXPIRY DATE- 30-NOV-2025
     Route: 041
     Dates: start: 20210326
  2. REMICADE [Suspect]
     Active Substance: INFLIXIMAB
     Dosage: INCREASED
     Route: 041
  3. REMICADE [Suspect]
     Active Substance: INFLIXIMAB
     Route: 041
  4. BENADRYL [Concomitant]
     Active Substance: DIPHENHYDRAMINE HYDROCHLORIDE
     Indication: Premedication
     Route: 048
  5. BENADRYL [Concomitant]
     Active Substance: DIPHENHYDRAMINE HYDROCHLORIDE
     Route: 042
  6. HYDROCORTISONE [Concomitant]
     Active Substance: HYDROCORTISONE
     Indication: Premedication
     Route: 042

REACTIONS (23)
  - Fungal infection [Not Recovered/Not Resolved]
  - Heart rate increased [Recovering/Resolving]
  - Hypertension [Recovered/Resolved]
  - Syncope [Not Recovered/Not Resolved]
  - Pustule [Recovering/Resolving]
  - Folliculitis [Unknown]
  - Anal incontinence [Not Recovered/Not Resolved]
  - Skin lesion [Unknown]
  - Peripheral swelling [Not Recovered/Not Resolved]
  - Vomiting [Not Recovered/Not Resolved]
  - Alopecia [Recovering/Resolving]
  - Chest pain [Unknown]
  - Urticaria [Not Recovered/Not Resolved]
  - Pain [Not Recovered/Not Resolved]
  - Rash [Recovering/Resolving]
  - Rash pruritic [Recovering/Resolving]
  - Cystitis [Unknown]
  - Infusion related reaction [Unknown]
  - Nausea [Recovered/Resolved]
  - Malaise [Unknown]
  - Headache [Recovered/Resolved]
  - Chest discomfort [Recovering/Resolving]
  - Herpes zoster [Recovered/Resolved]

NARRATIVE: CASE EVENT DATE: 20230101
